FAERS Safety Report 6053017-8 (Version None)
Quarter: 2009Q1

REPORT INFORMATION
  Report Type: 
  Country: None (occurrence: None)
  Receive Date: 20090127
  Receipt Date: 20090108
  Transmission Date: 20090719
  Serious: Yes (Hospitalization)
  Sender: FDA-Public Use
  Company Number: JP-PFIZER INC-2008089251

PATIENT

DRUGS (24)
  1. LIPITOR [Suspect]
     Indication: HYPERCHOLESTEROLAEMIA
     Dosage: 10 MG, 1X/DAY
     Route: 048
     Dates: start: 20080901
  2. LIPITOR [Suspect]
     Indication: DYSLIPIDAEMIA
  3. IOPAMIDOL [Suspect]
     Dosage: UNK
     Dates: start: 20080901
  4. IOPAMIDOL [Suspect]
     Dosage: UNK
     Dates: start: 20081007
  5. TERBINAFINE HYDROCHLORIDE [Suspect]
     Indication: TINEA PEDIS
     Dosage: 125 MG, 1X/DAY
     Route: 048
     Dates: start: 20080902, end: 20080915
  6. CALONAL [Suspect]
     Indication: PAIN
     Dosage: UNK
     Route: 048
     Dates: start: 20080905, end: 20080917
  7. CALONAL [Suspect]
     Indication: PYREXIA
  8. LOXOPROFEN SODIUM [Suspect]
     Indication: PAIN
     Dosage: UNK
     Dates: start: 20080903, end: 20080908
  9. LOXOPROFEN SODIUM [Suspect]
     Indication: PYREXIA
     Dosage: UNK
     Dates: start: 20080910, end: 20080913
  10. MICAFUNGIN SODIUM [Concomitant]
     Dosage: 50 MG, 1X/DAY
     Dates: start: 20080916, end: 20080916
  11. UROKINASE [Concomitant]
     Dosage: 48000 IU, 1X/DAY
     Route: 042
     Dates: start: 20080901, end: 20080919
  12. HEPARIN SODIUM [Concomitant]
     Dosage: 6 ML, 1X/DAY
     Route: 042
     Dates: start: 20080901, end: 20080919
  13. HEPARIN SODIUM [Concomitant]
     Dosage: 10 (MG)/DAY
  14. PARIET [Concomitant]
     Dosage: 10 MG, 1X/DAY
     Route: 048
     Dates: start: 20080901
  15. WARFARIN [Concomitant]
     Dosage: 5 MG, 1X/DAY
     Route: 048
     Dates: start: 20080901
  16. VANCOMYCIN [Concomitant]
     Indication: THROMBOPHLEBITIS
     Dosage: 1.25 MG, 1X/DAY
     Route: 042
     Dates: start: 20080906, end: 20080919
  17. ZYRTEC [Concomitant]
     Dosage: 10 MG, 1X/DAY
     Route: 048
     Dates: start: 20080915, end: 20080915
  18. FORSENID [Concomitant]
  19. MEROPEN [Concomitant]
  20. SOL-MELCORT [Concomitant]
  21. LEBENIN [Concomitant]
  22. ATARAX [Concomitant]
  23. POLARAMINE [Concomitant]
  24. RINDERON [Concomitant]

REACTIONS (1)
  - CONTRAST MEDIA ALLERGY [None]
